FAERS Safety Report 19061228 (Version 1)
Quarter: 2021Q1

REPORT INFORMATION
  Report Type: Spontaneous
  Country: US (occurrence: US)
  Receive Date: 20210326
  Receipt Date: 20210326
  Transmission Date: 20210420
  Serious: Yes (Hospitalization)
  Sender: FDA-Public Use
  Company Number: US-ROCHE-2792467

PATIENT
  Sex: Male

DRUGS (7)
  1. IRON [Concomitant]
     Active Substance: IRON
  2. LANSOPRAZOLE. [Concomitant]
     Active Substance: LANSOPRAZOLE
  3. RAPAFLO [Concomitant]
     Active Substance: SILODOSIN
  4. AUBAGIO [Suspect]
     Active Substance: TERIFLUNOMIDE
     Route: 048
     Dates: start: 20200123, end: 20200206
  5. OCREVUS [Suspect]
     Active Substance: OCRELIZUMAB
     Indication: MULTIPLE SCLEROSIS
     Route: 042
     Dates: start: 2017, end: 201906
  6. AUBAGIO [Suspect]
     Active Substance: TERIFLUNOMIDE
     Indication: MULTIPLE SCLEROSIS
     Route: 065
     Dates: start: 2017, end: 2017
  7. EMGALITY [Concomitant]
     Active Substance: GALCANEZUMAB-GNLM

REACTIONS (12)
  - Atrial fibrillation [Unknown]
  - Incisional hernia [Unknown]
  - Thyroid disorder [Unknown]
  - Oral pain [Recovered/Resolved]
  - Oropharyngeal pain [Recovered/Resolved]
  - Paraesthesia oral [Recovered/Resolved]
  - Throat irritation [Recovered/Resolved]
  - Intestinal obstruction [Unknown]
  - Pulmonary embolism [Unknown]
  - Sneezing [Unknown]
  - Cough [Unknown]
  - Oral discomfort [Recovered/Resolved]

NARRATIVE: CASE EVENT DATE: 2018
